FAERS Safety Report 16875807 (Version 2)
Quarter: 2019Q4

REPORT INFORMATION
  Report Type: Spontaneous
  Country: ES (occurrence: ES)
  Receive Date: 20191002
  Receipt Date: 20191226
  Transmission Date: 20200122
  Serious: Yes (Other)
  Sender: FDA-Public Use
  Company Number: ES-ROCHE-2416974

PATIENT
  Age: 66 Year
  Sex: Female

DRUGS (4)
  1. MYCOPHENOLATE MOFETIL. [Suspect]
     Active Substance: MYCOPHENOLATE MOFETIL
     Indication: ACUTE KIDNEY INJURY
     Dosage: 750 MG, QD
     Route: 065
  2. PREDNISONE. [Suspect]
     Active Substance: PREDNISONE
     Indication: ACUTE KIDNEY INJURY
     Dosage: 10 MG, QD (DOSE TAPERING)
     Route: 065
  3. PREDNISONE. [Suspect]
     Active Substance: PREDNISONE
     Indication: ANTI-GLOMERULAR BASEMENT MEMBRANE DISEASE
     Dosage: 1 MG/KG (TAPERED DOSE REIGMEN)
     Route: 065
  4. MYCOPHENOLATE MOFETIL. [Suspect]
     Active Substance: MYCOPHENOLATE MOFETIL
     Indication: ANTI-GLOMERULAR BASEMENT MEMBRANE DISEASE

REACTIONS (3)
  - Kaposi^s sarcoma [Recovered/Resolved]
  - Off label use [Unknown]
  - Product use in unapproved indication [Unknown]
